FAERS Safety Report 7702827-7 (Version None)
Quarter: 2011Q3

REPORT INFORMATION
  Report Type: 
  Country: None (occurrence: None)
  Receive Date: 20110823
  Receipt Date: 20110811
  Transmission Date: 20111222
  Serious: No
  Sender: FDA-Public Use
  Company Number: US-JNJFOC-20110806535

PATIENT
  Sex: Female
  Weight: 84.37 kg

DRUGS (13)
  1. TOPIRAMATE [Concomitant]
     Indication: PAIN
     Dosage: 1 IN AM AND 1 IN PM
     Route: 048
     Dates: start: 20060101
  2. NORCO [Concomitant]
     Indication: BREAKTHROUGH PAIN
     Dosage: 10/325 MG
     Route: 048
     Dates: start: 20010101
  3. DURAGESIC-100 [Suspect]
     Indication: INTERVERTEBRAL DISC PROTRUSION
     Route: 062
     Dates: start: 20110601
  4. TOPIRAMATE [Concomitant]
     Indication: MIGRAINE PROPHYLAXIS
     Dosage: 1 IN AM AND 1 IN PM
     Route: 048
     Dates: start: 20060101
  5. DURAGESIC-100 [Suspect]
     Indication: FIBROMYALGIA
     Route: 062
     Dates: start: 20110601
  6. CYMBALTA [Concomitant]
     Indication: DEPRESSION
     Route: 048
     Dates: start: 20050101
  7. PROVIGIL [Concomitant]
     Indication: ENERGY INCREASED
     Route: 048
     Dates: start: 20100101
  8. PROMETRIUM [Concomitant]
     Indication: HORMONE REPLACEMENT THERAPY
     Route: 048
     Dates: start: 20070101
  9. LAMICTAL [Concomitant]
     Indication: DEPRESSION
     Route: 048
     Dates: start: 20050101
  10. PREVACID [Concomitant]
     Indication: GASTROOESOPHAGEAL REFLUX DISEASE
     Route: 048
     Dates: start: 20060101
  11. ALPRAZOLAM [Concomitant]
     Indication: ANXIETY
     Route: 048
  12. CYMBALTA [Concomitant]
     Indication: PAIN
     Route: 048
     Dates: start: 20050101
  13. VIVELLE-DOT [Concomitant]
     Indication: HORMONE REPLACEMENT THERAPY
     Route: 062
     Dates: start: 20070101

REACTIONS (2)
  - WRONG TECHNIQUE IN DRUG USAGE PROCESS [None]
  - PRODUCT ADHESION ISSUE [None]
